FAERS Safety Report 19348917 (Version 1)
Quarter: 2021Q2

REPORT INFORMATION
  Report Type: Spontaneous
  Country: US (occurrence: US)
  Receive Date: 20210529
  Receipt Date: 20210529
  Transmission Date: 20210717
  Serious: Yes (Disabling, Congenital Anomaly)
  Sender: FDA-Public Use
  Company Number: None

PATIENT
  Age: 7 Year
  Sex: Male

DRUGS (1)
  1. CYTOTEC [Suspect]
     Active Substance: MISOPROSTOL

REACTIONS (8)
  - Speech disorder [None]
  - Gait inability [None]
  - Foetal exposure during pregnancy [None]
  - Failure to thrive [None]
  - Cerebral palsy [None]
  - Lung disorder [None]
  - Maternal exposure during pregnancy [None]
  - Complication of delivery [None]

NARRATIVE: CASE EVENT DATE: 20131102
